FAERS Safety Report 25970826 (Version 1)
Quarter: 2025Q4

REPORT INFORMATION
  Report Type: Spontaneous
  Country: KW (occurrence: None)
  Receive Date: 20251028
  Receipt Date: 20251028
  Transmission Date: 20260118
  Serious: Yes (Other)
  Sender: UCB
  Company Number: KW-UCBSA-2025067259

PATIENT
  Age: 17 Year
  Weight: 57 kg

DRUGS (2)
  1. BRIVARACETAM [Suspect]
     Active Substance: BRIVARACETAM
     Indication: Epilepsy
     Dosage: 100 MILLIGRAM, 2X/DAY (BID)
  2. BRIVARACETAM [Suspect]
     Active Substance: BRIVARACETAM
     Dosage: 50 MILLIGRAM AM, 100 MILLIGRAM PM

REACTIONS (2)
  - Weight decreased [Not Recovered/Not Resolved]
  - Off label use [Unknown]
